FAERS Safety Report 9659158 (Version 4)
Quarter: 2014Q2

REPORT INFORMATION
  Report Type: Spontaneous
  Country: IT (occurrence: IT)
  Receive Date: 20131031
  Receipt Date: 20140402
  Transmission Date: 20141212
  Serious: Yes (Hospitalization)
  Sender: FDA-Public Use
  Company Number: IT-MERCK-1310ITA013666

PATIENT
  Age: 35 Year
  Sex: Male

DRUGS (5)
  1. REBETOL [Suspect]
     Indication: CHRONIC HEPATITIS C
     Dosage: 1200 MG, QD
     Route: 048
     Dates: start: 20130125, end: 20130530
  2. REBETOL [Suspect]
     Dosage: 1200 MG DAILY
     Route: 048
     Dates: start: 201306, end: 20130712
  3. PEGASYS [Suspect]
     Indication: CHRONIC HEPATITIS C
     Dosage: 180 MICROGRAM, QW
     Route: 058
     Dates: start: 20130125, end: 20130705
  4. METHADONE HYDROCHLORIDE [Concomitant]
     Dosage: 90 MG, UNK
     Route: 048
  5. METHADONE HYDROCHLORIDE [Concomitant]
     Dosage: 90 MG, UNK
     Route: 048

REACTIONS (1)
  - Bronchopneumonia [Recovered/Resolved]
